FAERS Safety Report 7866083-1 (Version None)
Quarter: 2011Q4

REPORT INFORMATION
  Report Type: 
  Country: None (occurrence: None)
  Receive Date: 20111028
  Receipt Date: 20110413
  Transmission Date: 20120403
  Serious: No
  Sender: FDA-Public Use
  Company Number: US-GLAXOSMITHKLINE-A0923680A

PATIENT
  Age: 44 Year
  Sex: Female

DRUGS (1)
  1. ADVAIR DISKUS 100/50 [Suspect]
     Indication: PRODUCT USED FOR UNKNOWN INDICATION
     Route: 055
     Dates: start: 20110330, end: 20110413

REACTIONS (4)
  - ASTHENIA [None]
  - BACK PAIN [None]
  - SUFFOCATION FEELING [None]
  - DRUG INTOLERANCE [None]
